FAERS Safety Report 24427971 (Version 1)
Quarter: 2024Q4

REPORT INFORMATION
  Report Type: Spontaneous
  Country: BR (occurrence: BR)
  Receive Date: 20241011
  Receipt Date: 20241011
  Transmission Date: 20250114
  Serious: Yes (Hospitalization, Other)
  Sender: DAIICHI
  Company Number: BR-DSJP-DS-2024-101747-BR

PATIENT
  Age: 43 Year
  Sex: Female

DRUGS (10)
  1. ENHERTU [Suspect]
     Active Substance: FAM-TRASTUZUMAB DERUXTECAN-NXKI
     Indication: Breast cancer
     Dosage: 300 MG
     Route: 065
     Dates: start: 20231228
  2. ENHERTU [Suspect]
     Active Substance: FAM-TRASTUZUMAB DERUXTECAN-NXKI
     Dosage: 322 MG
     Route: 065
     Dates: start: 20240129
  3. ENHERTU [Suspect]
     Active Substance: FAM-TRASTUZUMAB DERUXTECAN-NXKI
     Dosage: 200 MG (4.4MG)
     Route: 065
     Dates: start: 20240129
  4. ENHERTU [Suspect]
     Active Substance: FAM-TRASTUZUMAB DERUXTECAN-NXKI
     Dosage: 260 MG
     Route: 065
     Dates: start: 20240401
  5. ENHERTU [Suspect]
     Active Substance: FAM-TRASTUZUMAB DERUXTECAN-NXKI
     Dosage: 260 MG
     Route: 065
     Dates: start: 20240422
  6. ENHERTU [Suspect]
     Active Substance: FAM-TRASTUZUMAB DERUXTECAN-NXKI
     Dosage: 260 MG
     Route: 065
     Dates: start: 20240513
  7. ENHERTU [Suspect]
     Active Substance: FAM-TRASTUZUMAB DERUXTECAN-NXKI
     Dosage: 260 MG
     Route: 065
     Dates: start: 20240603
  8. ENHERTU [Suspect]
     Active Substance: FAM-TRASTUZUMAB DERUXTECAN-NXKI
     Dosage: 260 MG
     Route: 065
     Dates: start: 20240624
  9. ENHERTU [Suspect]
     Active Substance: FAM-TRASTUZUMAB DERUXTECAN-NXKI
     Dosage: 260 MG
     Route: 065
     Dates: start: 20240715
  10. ENHERTU [Suspect]
     Active Substance: FAM-TRASTUZUMAB DERUXTECAN-NXKI
     Dosage: 200 MG (POST RT BONE MARROW TOXICITY IN SACRUM)
     Route: 065
     Dates: start: 20240909

REACTIONS (12)
  - Device related infection [Unknown]
  - Myelosuppression [Unknown]
  - Epistaxis [Unknown]
  - Bradyphrenia [Unknown]
  - Selective eating disorder [Unknown]
  - Post procedural diarrhoea [Unknown]
  - Neuropathy peripheral [Unknown]
  - Flatulence [Unknown]
  - Abdominal pain [Unknown]
  - Fatigue [Unknown]
  - Nausea [Unknown]
  - Dyspnoea [Unknown]
